FAERS Safety Report 6937682-6 (Version None)
Quarter: 2010Q3

REPORT INFORMATION
  Report Type: 
  Country: None (occurrence: None)
  Receive Date: 20100820
  Receipt Date: 20100820
  Transmission Date: 20110219
  Serious: Yes (Hospitalization)
  Sender: FDA-Public Use
  Company Number: None

PATIENT
  Sex: Female
  Weight: 66 kg

DRUGS (4)
  1. HERCEPTIN [Suspect]
     Dosage: 405 MG
     Dates: end: 20100802
  2. TAXOL [Suspect]
     Dosage: 402 MG
     Dates: end: 20100802
  3. CYCLOPHOSPHAMIDE [Suspect]
     Dates: end: 20100504
  4. DOXORUBICIN HYDROCHLORIDE [Suspect]
     Dates: end: 20100504

REACTIONS (7)
  - ACUTE PULMONARY OEDEMA [None]
  - CARDIOMEGALY [None]
  - CHILLS [None]
  - CONGESTIVE CARDIOMYOPATHY [None]
  - FATIGUE [None]
  - PNEUMONIA [None]
  - TACHYCARDIA [None]
